FAERS Safety Report 26070211 (Version 1)
Quarter: 2025Q4

REPORT INFORMATION
  Report Type: Spontaneous
  Country: US (occurrence: US)
  Receive Date: 20251120
  Receipt Date: 20251120
  Transmission Date: 20260117
  Serious: Yes (Other)
  Sender: NOVARTIS
  Company Number: US-002147023-NVSC2025US175057

PATIENT
  Sex: Male

DRUGS (2)
  1. TAFINLAR [Suspect]
     Active Substance: DABRAFENIB MESYLATE
     Indication: Hairy cell leukaemia
     Dosage: 150 MG, Q12H
     Route: 048
     Dates: start: 202412
  2. MEKINIST [Suspect]
     Active Substance: TRAMETINIB DIMETHYL SULFOXIDE
     Indication: Hairy cell leukaemia
     Dosage: 150 MG, BID (EVERY 12 HOURS)
     Route: 048
     Dates: start: 202412

REACTIONS (4)
  - Skin cancer [Unknown]
  - Second primary malignancy [Unknown]
  - Visual impairment [Unknown]
  - Off label use [Unknown]
